FAERS Safety Report 6005723-9 (Version None)
Quarter: 2008Q4

REPORT INFORMATION
  Report Type: 
  Country: None (occurrence: None)
  Receive Date: 20081217
  Receipt Date: 20081203
  Transmission Date: 20090506
  Serious: No
  Sender: FDA-Public Use
  Company Number: US-BAYER-200840244NA

PATIENT
  Age: 31 Year
  Sex: Female
  Weight: 60 kg

DRUGS (1)
  1. YAZ [Suspect]
     Indication: PROPHYLAXIS
     Route: 048
     Dates: start: 20080901

REACTIONS (4)
  - DRUG DOSE OMISSION [None]
  - MENOMETRORRHAGIA [None]
  - NO ADVERSE EVENT [None]
  - VAGINAL DISCHARGE [None]
